FAERS Safety Report 7455482-8 (Version None)
Quarter: 2011Q2

REPORT INFORMATION
  Report Type: 
  Country: None (occurrence: None)
  Receive Date: 20110503
  Receipt Date: 20110426
  Transmission Date: 20111010
  Serious: Yes (Other)
  Sender: FDA-Public Use
  Company Number: US-ROCHE-743330

PATIENT
  Sex: Female
  Weight: 72.6 kg

DRUGS (3)
  1. CONTRACEPTIVE [Concomitant]
     Route: 048
  2. ACCUTANE [Suspect]
     Route: 065
     Dates: start: 19970101, end: 19971201
  3. ACCUTANE [Suspect]
     Indication: ACNE
     Route: 065
     Dates: start: 19950101, end: 19960101

REACTIONS (6)
  - POLYP [None]
  - GASTROINTESTINAL INJURY [None]
  - COLITIS ULCERATIVE [None]
  - ARTHRITIS [None]
  - INFLAMMATORY BOWEL DISEASE [None]
  - DEPRESSION [None]
